FAERS Safety Report 16168625 (Version 1)
Quarter: 2019Q2

REPORT INFORMATION
  Report Type: Report from Study
  Country: NO (occurrence: NO)
  Receive Date: 20190408
  Receipt Date: 20190408
  Transmission Date: 20190711
  Serious: Yes (Hospitalization, Other)
  Sender: FDA-Public Use
  Company Number: NO-ROCHE-2295581

PATIENT

DRUGS (2)
  1. RITUXIMAB. [Suspect]
     Active Substance: RITUXIMAB
     Indication: AUTOIMMUNE DISORDER
     Route: 042
  2. RITUXIMAB. [Suspect]
     Active Substance: RITUXIMAB
     Indication: INFLAMMATION
     Route: 042

REACTIONS (12)
  - Upper respiratory tract infection [Unknown]
  - Soft tissue infection [Unknown]
  - Cytopenia [Unknown]
  - Immunoglobulins abnormal [Unknown]
  - Intentional product use issue [Unknown]
  - Pyelonephritis acute [Unknown]
  - Skin infection [Unknown]
  - Osteomyelitis [Unknown]
  - Enterocolitis bacterial [Unknown]
  - Off label use [Unknown]
  - Lower respiratory tract infection [Unknown]
  - Gastroenteritis viral [Unknown]
